FAERS Safety Report 6499792-X (Version None)
Quarter: 2009Q4

REPORT INFORMATION
  Report Type: 
  Country: None (occurrence: None)
  Receive Date: 20091214
  Receipt Date: 20091120
  Transmission Date: 20100525
  Serious: Yes (Other)
  Sender: FDA-Public Use
  Company Number: CIO09020754

PATIENT
  Age: 80 Year
  Sex: Male

DRUGS (1)
  1. METAMUCIL SUGAR-FREE SMOOTH TEXTURE, ORANGE FLAVOR (PSYLLIUM HYDROPHIL [Suspect]
     Dosage: 1 TSP, 2/DAY, ORAL
     Route: 048

REACTIONS (3)
  - EXPIRED DRUG ADMINISTERED [None]
  - RENAL DISORDER [None]
  - RENAL FAILURE [None]
